FAERS Safety Report 6198243-2 (Version None)
Quarter: 2009Q2

REPORT INFORMATION
  Report Type: 
  Country: None (occurrence: None)
  Receive Date: 20090521
  Receipt Date: 20090512
  Transmission Date: 20091009
  Serious: Yes (Other)
  Sender: FDA-Public Use
  Company Number: US-AVENTIS-200817556US

PATIENT
  Sex: Male
  Weight: 101.15 kg

DRUGS (6)
  1. KETEK [Suspect]
     Dosage: DOSE: UNK
     Dates: start: 20070110
  2. DIOVAN HCT [Concomitant]
  3. SYNTHROID [Concomitant]
  4. ASPIRIN [Concomitant]
  5. FISH OIL [Concomitant]
     Dosage: DOSE: UNK
  6. COUMADIN [Concomitant]
     Dosage: DOSE: UNK
     Dates: start: 20070125, end: 20070101

REACTIONS (8)
  - ALANINE AMINOTRANSFERASE INCREASED [None]
  - ASPARTATE AMINOTRANSFERASE INCREASED [None]
  - BLOOD ALKALINE PHOSPHATASE INCREASED [None]
  - BLOOD BILIRUBIN INCREASED [None]
  - CONSTIPATION [None]
  - HEPATITIS TOXIC [None]
  - INTERNATIONAL NORMALISED RATIO ABNORMAL [None]
  - PROTHROMBIN TIME PROLONGED [None]
